FAERS Safety Report 9632903 (Version 2)
Quarter: 2013Q4

REPORT INFORMATION
  Report Type: Spontaneous
  Country: US (occurrence: US)
  Receive Date: 20131018
  Receipt Date: 20131226
  Transmission Date: 20140711
  Serious: Yes (Hospitalization)
  Sender: FDA-Public Use
  Company Number: US-BAXTER-2013BAX040072

PATIENT
  Age: 48 Year
  Sex: Female
  Weight: 58.11 kg

DRUGS (4)
  1. GAMMAGARD LIQUID [Suspect]
     Indication: IMMUNODEFICIENCY COMMON VARIABLE
     Route: 042
     Dates: start: 20130418
  2. GAMMAGARD LIQUID [Suspect]
     Route: 042
     Dates: start: 20131007, end: 20131007
  3. GAMMAGARD LIQUID [Suspect]
     Route: 042
     Dates: start: 20131007, end: 20131007
  4. VIVAGLOBIN [Concomitant]
     Indication: IMMUNODEFICIENCY COMMON VARIABLE
     Route: 065

REACTIONS (5)
  - Chest pain [Recovered/Resolved]
  - Disorientation [Recovered/Resolved]
  - Confusional state [Recovered/Resolved]
  - Aphasia [Recovered/Resolved]
  - Speech disorder [Recovered/Resolved]
